FAERS Safety Report 7426953-5 (Version None)
Quarter: 2011Q2

REPORT INFORMATION
  Report Type: 
  Country: None (occurrence: None)
  Receive Date: 20110420
  Receipt Date: 20110415
  Transmission Date: 20111010
  Serious: Yes (Other)
  Sender: FDA-Public Use
  Company Number: BE-PFIZER INC-2011083894

PATIENT
  Age: 42 Year
  Sex: Male

DRUGS (1)
  1. TOVIAZ [Suspect]
     Route: 048

REACTIONS (1)
  - HYPERGLYCAEMIA [None]
